FAERS Safety Report 9631279 (Version 1)
Quarter: 2013Q4

REPORT INFORMATION
  Report Type: Spontaneous
  Country: US (occurrence: None)
  Receive Date: 20131017
  Receipt Date: 20131017
  Transmission Date: 20140711
  Serious: Yes (Hospitalization)
  Sender: FDA-Public Use
  Company Number: None

PATIENT
  Age: 66 Year
  Sex: Female
  Weight: 139 kg

DRUGS (18)
  1. PERTUZUMAB [Suspect]
     Indication: INFLAMMATORY CARCINOMA OF THE BREAST
     Dosage: 420 MG, Q3W,  IV
     Route: 042
     Dates: start: 20130816
  2. TRASTUZUMAB [Suspect]
     Indication: INFLAMMATORY CARCINOMA OF THE BREAST
     Dosage: 2 MG/KG, QW, IV
     Route: 042
     Dates: start: 20130816
  3. ALCOHOL WIPES [Concomitant]
  4. ASA (CHILDRENS) (ACETYLSALICYLIC ACID (CHILDRENS) ) [Concomitant]
  5. CHLORTHALIDONE [Concomitant]
  6. CIPROFLOXACIN [Concomitant]
  7. COMPAZINE (PROCHLORPERAZINE MALEATE) [Concomitant]
  8. HUMALOG MIX 75/25 (INSULIN LISPRO MIX 75/25) [Concomitant]
  9. IBUPROFEN [Concomitant]
  10. IMODIUM A.D. (LOPERAMIDE HCL) [Concomitant]
  11. LIDODERM 5% PATCH (LIDOCAINE 5% PATCH) [Concomitant]
  12. LISINOPRIL [Concomitant]
  13. LORAZEPAM [Concomitant]
  14. NYSTATIN [Concomitant]
  15. ONDANSTRON HCL [Concomitant]
  16. OXYBUTYNIN CHLORIDE [Concomitant]
  17. PRAVASTATIN [Concomitant]
  18. ZOLOFT (SERTRALINE) [Concomitant]

REACTIONS (11)
  - Renal failure acute [None]
  - Diarrhoea [None]
  - Nausea [None]
  - Fatigue [None]
  - Hyperglycaemia [None]
  - Anaemia [None]
  - Dehydration [None]
  - Gait disturbance [None]
  - Dysgeusia [None]
  - Vision blurred [None]
  - Diabetes mellitus [None]
